FAERS Safety Report 10021486 (Version 1)
Quarter: 2014Q1

REPORT INFORMATION
  Report Type: Spontaneous
  Country: US (occurrence: None)
  Receive Date: 20140318
  Receipt Date: 20140318
  Transmission Date: 20141002
  Serious: Yes (Disabling)
  Sender: FDA-Public Use
  Company Number: None

PATIENT
  Age: 70 Year
  Sex: Male
  Weight: 70.31 kg

DRUGS (2)
  1. CARVEDILOL [Suspect]
     Indication: AORTIC VALVE DISEASE
     Dosage: 2 PILLS
     Route: 048
     Dates: start: 20140201, end: 20140312
  2. COSIMIN DS [Concomitant]

REACTIONS (6)
  - Product substitution issue [None]
  - Product quality issue [None]
  - Abdominal pain [None]
  - Diarrhoea [None]
  - Pollakiuria [None]
  - Muscular weakness [None]
